FAERS Safety Report 4473834-5 (Version None)
Quarter: 2004Q4

REPORT INFORMATION
  Report Type: 
  Country: None (occurrence: None)
  Receive Date: 20041008
  Receipt Date: 20041008
  Transmission Date: 20050328
  Serious: Yes (Hospitalization)
  Sender: FDA-Public Use
  Company Number: None

PATIENT
  Age: 61 Year
  Sex: Female
  Weight: 77.1115 kg

DRUGS (7)
  1. MERREM [Suspect]
     Indication: PNEUMONIA
     Dosage: 500 MG IVPB Q12 H
     Route: 042
     Dates: start: 20040910, end: 20040914
  2. COREG [Concomitant]
  3. DIGOXIN [Concomitant]
  4. FUROSEMIDE [Concomitant]
  5. DIFLUCAN [Concomitant]
  6. DOPAMINE HCL [Concomitant]
  7. VANCOMYCIN [Concomitant]

REACTIONS (3)
  - AGITATION [None]
  - CONVULSION [None]
  - DECREASED ACTIVITY [None]
